FAERS Safety Report 16712206 (Version 1)
Quarter: 2019Q3

REPORT INFORMATION
  Report Type: Spontaneous
  Country: US (occurrence: US)
  Receive Date: 20190816
  Receipt Date: 20190816
  Transmission Date: 20191004
  Serious: Yes (Hospitalization)
  Sender: FDA-Public Use
  Company Number: US-WALMART-2073262

PATIENT
  Sex: Female

DRUGS (1)
  1. EQUATE MINERAL OIL [Suspect]
     Active Substance: MINERAL OIL
     Indication: CONSTIPATION
     Route: 048

REACTIONS (2)
  - Respiration abnormal [None]
  - Pneumonia lipoid [None]
